FAERS Safety Report 13760172 (Version 2)
Quarter: 2017Q3

REPORT INFORMATION
  Report Type: Spontaneous
  Country: FR (occurrence: FR)
  Receive Date: 20170717
  Receipt Date: 20170719
  Transmission Date: 20171127
  Serious: Yes (Hospitalization, Other)
  Sender: FDA-Public Use
  Company Number: FR-009507513-1707FRA002579

PATIENT
  Age: 63 Year
  Sex: Male

DRUGS (2)
  1. ISENTRESS [Suspect]
     Active Substance: RALTEGRAVIR POTASSIUM
     Dosage: FORMULATION: GRANULES 3 PACKETS OF 100 MG
     Dates: start: 20170607
  2. ISENTRESS [Suspect]
     Active Substance: RALTEGRAVIR POTASSIUM
     Dosage: 400 MG, BID
     Route: 048
     Dates: start: 201103, end: 201706

REACTIONS (3)
  - Pulmonary oedema [Unknown]
  - Off label use [Unknown]
  - Lung disorder [Unknown]

NARRATIVE: CASE EVENT DATE: 2017
